FAERS Safety Report 19779683 (Version 1)
Quarter: 2021Q3

REPORT INFORMATION
  Report Type: Spontaneous
  Country: US (occurrence: US)
  Receive Date: 20210902
  Receipt Date: 20210902
  Transmission Date: 20211014
  Serious: No
  Sender: FDA-Public Use
  Company Number: US-PUMA BIOTECHNOLOGY, LTD.-2020US008487

PATIENT

DRUGS (2)
  1. NERLYNX [Suspect]
     Active Substance: NERATINIB
     Indication: PRODUCT USED FOR UNKNOWN INDICATION
     Dosage: UNK
     Route: 048
  2. NERLYNX [Suspect]
     Active Substance: NERATINIB
     Dosage: 4 TABLETS (160 MG), DAILY
     Route: 048

REACTIONS (1)
  - Adverse drug reaction [Recovered/Resolved]
